FAERS Safety Report 10585821 (Version 5)
Quarter: 2015Q3

REPORT INFORMATION
  Report Type: Spontaneous
  Country: US (occurrence: US)
  Receive Date: 20141114
  Receipt Date: 20150707
  Transmission Date: 20151125
  Serious: Yes (Hospitalization, Disabling, Other)
  Sender: FDA-Public Use
  Company Number: US-009507513-1411USA006834

PATIENT
  Sex: Female
  Weight: 65.76 kg

DRUGS (3)
  1. FOSAMAX [Suspect]
     Active Substance: ALENDRONATE SODIUM
     Indication: BONE DENSITY DECREASED
     Dosage: 35 MG, UNK
     Route: 048
     Dates: start: 2006, end: 2008
  2. RECLAST [Suspect]
     Active Substance: ZOLEDRONIC ACID
     Indication: BONE DENSITY DECREASED
     Dosage: 5 MG/100 ML SOLUTION, ONCE A YEAR
     Route: 042
     Dates: start: 2008, end: 201201
  3. ALENDRONATE SODIUM. [Suspect]
     Active Substance: ALENDRONATE SODIUM
     Indication: BONE DISORDER
     Route: 048

REACTIONS (26)
  - Blood cholesterol increased [Unknown]
  - Haematoma [Unknown]
  - Mass [Unknown]
  - Drug intolerance [Unknown]
  - Chest pain [Unknown]
  - Low turnover osteopathy [Unknown]
  - Hypothyroidism [Unknown]
  - Osteopenia [Unknown]
  - Cystitis [Unknown]
  - Female sterilisation [Unknown]
  - Femur fracture [Unknown]
  - Fall [Unknown]
  - Coronary artery disease [Unknown]
  - Hyperlipidaemia [Unknown]
  - Breast reconstruction [Unknown]
  - Osteoma [Unknown]
  - Muscular weakness [Unknown]
  - Weight increased [Unknown]
  - Bone pain [Unknown]
  - Bladder operation [Unknown]
  - Gastrointestinal disorder [Unknown]
  - Arthralgia [Unknown]
  - Emotional distress [Unknown]
  - Sinusitis [Unknown]
  - Gastrooesophageal reflux disease [Unknown]
  - Cardiovascular disorder [Unknown]

NARRATIVE: CASE EVENT DATE: 2006
